FAERS Safety Report 24121205 (Version 1)
Quarter: 2024Q3

REPORT INFORMATION
  Report Type: Spontaneous
  Country: US (occurrence: US)
  Receive Date: 20240722
  Receipt Date: 20240722
  Transmission Date: 20241016
  Serious: Yes (Life-Threatening, Hospitalization)
  Sender: MYLAN
  Company Number: US-MYLANLABS-2024M1068106

PATIENT
  Age: 18 Year
  Sex: Female

DRUGS (20)
  1. AMLODIPINE [Suspect]
     Active Substance: AMLODIPINE BESYLATE
     Indication: Product used for unknown indication
     Dosage: 900 MILLIGRAM
     Route: 048
  2. ACETAMINOPHEN [Suspect]
     Active Substance: ACETAMINOPHEN
     Indication: Product used for unknown indication
     Dosage: UNK
     Route: 065
  3. EPINEPHRINE [Suspect]
     Active Substance: EPINEPHRINE
     Indication: Cardiogenic shock
     Dosage: UNK
     Route: 065
  4. EPINEPHRINE [Suspect]
     Active Substance: EPINEPHRINE
     Indication: Intentional overdose
  5. EPINEPHRINE [Suspect]
     Active Substance: EPINEPHRINE
     Indication: Vasoplegia syndrome
  6. NOREPINEPHRINE [Suspect]
     Active Substance: NOREPINEPHRINE\NOREPINEPHRINE BITARTRATE
     Indication: Cardiogenic shock
     Dosage: UNK
     Route: 065
  7. NOREPINEPHRINE [Suspect]
     Active Substance: NOREPINEPHRINE\NOREPINEPHRINE BITARTRATE
     Indication: Intentional overdose
  8. NOREPINEPHRINE [Suspect]
     Active Substance: NOREPINEPHRINE\NOREPINEPHRINE BITARTRATE
     Indication: Vasoplegia syndrome
  9. CALCIUM [Suspect]
     Active Substance: CALCIUM
     Indication: Cardiogenic shock
     Dosage: UNK
     Route: 065
  10. CALCIUM [Suspect]
     Active Substance: CALCIUM
     Indication: Intentional overdose
  11. CALCIUM [Suspect]
     Active Substance: CALCIUM
     Indication: Vasoplegia syndrome
  12. INSULIN HUMAN [Suspect]
     Active Substance: INSULIN HUMAN
     Indication: Cardiogenic shock
     Dosage: UNK, HIGH-DOSE
     Route: 065
  13. INSULIN HUMAN [Suspect]
     Active Substance: INSULIN HUMAN
     Indication: Intentional overdose
  14. INSULIN HUMAN [Suspect]
     Active Substance: INSULIN HUMAN
     Indication: Vasoplegia syndrome
  15. VASOPRESSIN [Suspect]
     Active Substance: VASOPRESSIN
     Indication: Cardiogenic shock
     Dosage: UNK
     Route: 065
  16. VASOPRESSIN [Suspect]
     Active Substance: VASOPRESSIN
     Indication: Intentional overdose
  17. VASOPRESSIN [Suspect]
     Active Substance: VASOPRESSIN
     Indication: Vasoplegia syndrome
  18. METHYLENE BLUE [Suspect]
     Active Substance: METHYLENE BLUE
     Indication: Cardiogenic shock
     Dosage: UNK
     Route: 065
  19. METHYLENE BLUE [Suspect]
     Active Substance: METHYLENE BLUE
     Indication: Intentional overdose
  20. METHYLENE BLUE [Suspect]
     Active Substance: METHYLENE BLUE
     Indication: Vasoplegia syndrome

REACTIONS (7)
  - Intentional overdose [Recovered/Resolved]
  - Harlequin syndrome [Recovered/Resolved]
  - Cardiogenic shock [Recovered/Resolved]
  - Non-cardiogenic pulmonary oedema [Recovered/Resolved]
  - Vasoplegia syndrome [Recovered/Resolved]
  - Hypoxia [Recovered/Resolved]
  - Drug ineffective [Unknown]
